FAERS Safety Report 7328403-6 (Version None)
Quarter: 2011Q1

REPORT INFORMATION
  Report Type: 
  Country: None (occurrence: None)
  Receive Date: 20110224
  Receipt Date: 20110224
  Transmission Date: 20110831
  Serious: No
  Sender: FDA-Public Use
  Company Number: None

PATIENT
  Sex: Female

DRUGS (9)
  1. AMPYRA [Suspect]
     Dosage: 10MG TAKE 1 TABLET BY MOUTH TWICE A DAY
     Route: 047
  2. LEVOTHYROXINE SODIUM [Concomitant]
  3. TRILIPIX [Concomitant]
  4. BACLOFEN [Concomitant]
  5. MULTI-VITAMIN [Concomitant]
  6. CALCIUM + D [Concomitant]
  7. VESICARE [Concomitant]
  8. LISINOPRIL [Concomitant]
  9. LOVAZA [Concomitant]

REACTIONS (5)
  - ARTHRALGIA [None]
  - UNEVALUABLE EVENT [None]
  - ERYTHEMA [None]
  - HEART RATE INCREASED [None]
  - JOINT WARMTH [None]
